FAERS Safety Report 6818957-8 (Version None)
Quarter: 2010Q3

REPORT INFORMATION
  Report Type: 
  Country: None (occurrence: None)
  Receive Date: 20100707
  Receipt Date: 20100303
  Transmission Date: 20110219
  Serious: Yes (Other)
  Sender: FDA-Public Use
  Company Number: US-ASTRAZENECA-2009SE16626

PATIENT
  Age: 50 Year
  Sex: Female
  Weight: 102.1 kg

DRUGS (4)
  1. SEROQUEL [Suspect]
     Dosage: 100 MG TO 400 MG
     Route: 048
     Dates: start: 20070529
  2. RANITIDINE [Concomitant]
     Dates: start: 20070529
  3. ACTOS [Concomitant]
     Dates: start: 20070529
  4. TOPAMAX [Concomitant]
     Dates: start: 20070529

REACTIONS (2)
  - DIABETIC NEUROPATHY [None]
  - TYPE 2 DIABETES MELLITUS [None]
